FAERS Safety Report 5397039-9 (Version None)
Quarter: 2007Q3

REPORT INFORMATION
  Report Type: 
  Country: None (occurrence: None)
  Receive Date: 20070723
  Receipt Date: 20070706
  Transmission Date: 20080115
  Serious: Yes (Other)
  Sender: FDA-Public Use
  Company Number: 012973

PATIENT
  Age: 53 Year
  Sex: Female

DRUGS (1)
  1. PRIALT [Suspect]
     Indication: BONE PAIN
     Dosage: 0.05 UG; ONCE/HOUR
     Dates: start: 20070515

REACTIONS (6)
  - CONJUNCTIVAL HAEMORRHAGE [None]
  - HAEMATOCRIT INCREASED [None]
  - HAEMOGLOBIN INCREASED [None]
  - INTERNATIONAL NORMALISED RATIO DECREASED [None]
  - PETECHIAE [None]
  - RED BLOOD CELL COUNT INCREASED [None]
